FAERS Safety Report 15451993 (Version 2)
Quarter: 2018Q4

REPORT INFORMATION
  Report Type: Report from Study
  Country: IT (occurrence: IT)
  Receive Date: 20181001
  Receipt Date: 20181226
  Transmission Date: 20190204
  Serious: Yes (Other)
  Sender: FDA-Public Use
  Company Number: IT-PFIZER INC-2018390170

PATIENT
  Age: 79 Year
  Sex: Male

DRUGS (4)
  1. SERTRALINE HCL [Suspect]
     Active Substance: SERTRALINE HYDROCHLORIDE
     Indication: DEPRESSION
     Dosage: 25 MG, 1X/DAY
     Route: 048
     Dates: start: 20180718, end: 20180728
  2. TAVOR (LORAZEPAM) [Concomitant]
     Active Substance: LORAZEPAM
     Dosage: 3 MG, UNK
     Route: 048
  3. TIKLID [Concomitant]
     Active Substance: TICLOPIDINE HYDROCHLORIDE
     Dosage: 250 MG, UNK
     Route: 048
  4. DEURSIL [Concomitant]
     Active Substance: URSODIOL
     Dosage: 300 MG, UNK
     Route: 048

REACTIONS (2)
  - Dysuria [Recovering/Resolving]
  - Hyponatraemia [Recovering/Resolving]

NARRATIVE: CASE EVENT DATE: 20180728
